FAERS Safety Report 6935137-6 (Version None)
Quarter: 2010Q3

REPORT INFORMATION
  Report Type: 
  Country: None (occurrence: None)
  Receive Date: 20100822
  Receipt Date: 20100813
  Transmission Date: 20110219
  Serious: Yes (Hospitalization)
  Sender: FDA-Public Use
  Company Number: PHHO2010US10318

PATIENT
  Sex: Female

DRUGS (7)
  1. AFINITOR [Suspect]
     Indication: ENDOMETRIAL CANCER METASTATIC
     Dosage: 5MG / EVERY OTHER DAY
     Route: 048
     Dates: start: 20100302, end: 20100526
  2. TOPOTECAN COMP-TOP+ [Suspect]
     Indication: ENDOMETRIAL CANCER METASTATIC
     Dosage: 1.5MG D1-5, Q21 DAYS
     Dates: start: 20100223, end: 20100524
  3. OXYCONTIN [Concomitant]
  4. ZOCOR [Concomitant]
  5. ZOLOFT [Concomitant]
  6. MILK OF MAGNESIA TAB [Concomitant]
  7. OXYCODONE [Concomitant]

REACTIONS (5)
  - CONSTIPATION [None]
  - LYME DISEASE [None]
  - NAUSEA [None]
  - NEUROPATHY PERIPHERAL [None]
  - VOMITING [None]
